FAERS Safety Report 10756975 (Version 2)
Quarter: 2015Q1

REPORT INFORMATION
  Report Type: Report from Study
  Country: ES (occurrence: ES)
  Receive Date: 20150203
  Receipt Date: 20150209
  Transmission Date: 20150721
  Serious: Yes (Other)
  Sender: FDA-Public Use
  Company Number: PHHO2015ES001572

PATIENT
  Age: 47 Year
  Sex: Male
  Weight: 84.6 kg

DRUGS (5)
  1. TENOFOVIR [Concomitant]
     Active Substance: TENOFOVIR
     Indication: PROPHYLAXIS
     Dosage: 300 MG, OB
     Route: 065
     Dates: start: 20141112
  2. NO TREATMENT RECEIVED [Suspect]
     Active Substance: UNSPECIFIED INGREDIENT
     Indication: LIVER TRANSPLANT
     Dosage: NO TREATMENT
     Route: 065
  3. PREDNISONE. [Suspect]
     Active Substance: PREDNISONE
     Indication: LIVER TRANSPLANT
     Dosage: 15 MG, OB
     Route: 065
     Dates: start: 20141111
  4. CELLCEPT [Concomitant]
     Active Substance: MYCOPHENOLATE MOFETIL\MYCOPHENOLATE MOFETIL HYDROCHLORIDE
     Indication: LIVER TRANSPLANT
     Dosage: 500 MG, Q12H, OB
     Route: 065
     Dates: start: 20141117
  5. ADVAGRAF [Suspect]
     Active Substance: TACROLIMUS
     Indication: LIVER TRANSPLANT
     Dosage: 6 MG, OB
     Route: 065
     Dates: start: 20141114

REACTIONS (1)
  - Herpes virus infection [Recovered/Resolved]

NARRATIVE: CASE EVENT DATE: 20141211
